FAERS Safety Report 17821155 (Version 1)
Quarter: 2020Q2

REPORT INFORMATION
  Report Type: Spontaneous
  Country: HR (occurrence: HR)
  Receive Date: 20200525
  Receipt Date: 20200525
  Transmission Date: 20200714
  Serious: Yes (Death, Life-Threatening, Hospitalization)
  Sender: FDA-Public Use
  Company Number: HR-STRIDES ARCOLAB LIMITED-2020SP006004

PATIENT
  Age: 6 Decade
  Sex: Male

DRUGS (5)
  1. MYCOPHENOLATE MOFETIL. [Suspect]
     Active Substance: MYCOPHENOLATE MOFETIL
     Indication: RENAL TRANSPLANT
     Dosage: 540 MILLIGRAM, BID
     Route: 065
     Dates: start: 2011
  2. ANTITHYMOCYTE IMMUNOGLOBULIN [Suspect]
     Active Substance: THYMOCYTE IMMUNE GLOBULIN NOS
     Indication: RENAL TRANSPLANT
     Dosage: UNK, INDUCTION
     Route: 065
     Dates: start: 201111
  3. TACROLIMUS. [Suspect]
     Active Substance: TACROLIMUS
     Indication: RENAL TRANSPLANT
     Dosage: UNK, TITRATED TO 4-8 NG/ML
     Route: 065
     Dates: start: 2011
  4. PREDNISOLONE. [Suspect]
     Active Substance: PREDNISOLONE
     Dosage: 7.5 MILLIGRAM
     Route: 065
  5. PREDNISOLONE. [Suspect]
     Active Substance: PREDNISOLONE
     Indication: RENAL TRANSPLANT
     Dosage: 5 MILLIGRAM, DAILY
     Route: 065
     Dates: start: 2011

REACTIONS (18)
  - Immune reconstitution inflammatory syndrome [Fatal]
  - Respiratory failure [Unknown]
  - Staphylococcal infection [Unknown]
  - Transplant dysfunction [Unknown]
  - Mental status changes [Not Recovered/Not Resolved]
  - Motor dysfunction [Not Recovered/Not Resolved]
  - Pseudomonas infection [Unknown]
  - Coma [Fatal]
  - Personality change [Not Recovered/Not Resolved]
  - Memory impairment [Not Recovered/Not Resolved]
  - Myalgia [Not Recovered/Not Resolved]
  - JC virus infection [Fatal]
  - Speech disorder [Not Recovered/Not Resolved]
  - Depression [Not Recovered/Not Resolved]
  - Insomnia [Not Recovered/Not Resolved]
  - Progressive multifocal leukoencephalopathy [Fatal]
  - Pneumonia [Unknown]
  - Pyrexia [Recovered/Resolved]

NARRATIVE: CASE EVENT DATE: 2014
